FAERS Safety Report 16627794 (Version 2)
Quarter: 2019Q3

REPORT INFORMATION
  Report Type: Spontaneous
  Country: FR (occurrence: FR)
  Receive Date: 20190724
  Receipt Date: 20190909
  Transmission Date: 20191004
  Serious: Yes (Death, Hospitalization, Other)
  Sender: FDA-Public Use
  Company Number: FR-GILEAD-2019-0419807

PATIENT
  Age: 41 Year
  Sex: Male
  Weight: 61.5 kg

DRUGS (4)
  1. TERCIAN [CYAMEMAZINE TARTRATE] [Concomitant]
     Active Substance: CYAMEMAZINE
     Dosage: 25 MG, QD
     Route: 048
  2. BACTRIM [Concomitant]
     Active Substance: SULFAMETHOXAZOLE\TRIMETHOPRIM
     Indication: PROPHYLAXIS
     Dosage: 1 DOSAGE FORM, QD
     Route: 048
     Dates: start: 20190705
  3. BIKTARVY [Suspect]
     Active Substance: BICTEGRAVIR SODIUM\EMTRICITABINE\TENOFOVIR ALAFENAMIDE FUMARATE
     Indication: HIV INFECTION CDC CATEGORY C
     Dosage: 1 DOSAGE FORM (50 MG/200 MG/25 MG), QD
     Route: 048
     Dates: start: 20190705
  4. TERCIAN [CYAMEMAZINE TARTRATE] [Concomitant]
     Active Substance: CYAMEMAZINE
     Dosage: 50 MG, QD
     Route: 048
     Dates: start: 20190711

REACTIONS (4)
  - Depression [Fatal]
  - Completed suicide [Fatal]
  - Delusional disorder, unspecified type [Unknown]
  - Sleep disorder [Unknown]

NARRATIVE: CASE EVENT DATE: 201907
